FAERS Safety Report 9310326 (Version 2)
Quarter: 2013Q2

REPORT INFORMATION
  Report Type: Spontaneous
  Country: US (occurrence: US)
  Receive Date: 20130527
  Receipt Date: 20130529
  Transmission Date: 20140414
  Serious: Yes (Other)
  Sender: FDA-Public Use
  Company Number: US-PFIZER INC-2013158700

PATIENT
  Age: 55 Year
  Sex: Female
  Weight: 63.49 kg

DRUGS (7)
  1. LYRICA [Suspect]
     Indication: FIBROMYALGIA
     Dosage: 50 MG, UNK
     Dates: start: 2007
  2. LYRICA [Suspect]
     Dosage: 150 MG, 3X/DAY
     Dates: end: 2011
  3. ZOLOFT [Suspect]
     Indication: DEPRESSION
     Dosage: UNK
  4. GABAPENTIN [Suspect]
     Indication: FIBROMYALGIA
     Dosage: 300 MG, 2X/DAY
     Dates: start: 2012
  5. IBUPROFEN [Suspect]
     Indication: PAIN
     Dosage: 600 MG, 2X/DAY
  6. CYMBALTA [Suspect]
     Indication: DEPRESSION
     Dosage: UNK
  7. BUPROPION HYDROCHLORIDE [Suspect]
     Indication: DEPRESSION
     Dosage: UNK

REACTIONS (11)
  - Depression [Recovering/Resolving]
  - Somnolence [Unknown]
  - Impaired work ability [Unknown]
  - Activities of daily living impaired [Unknown]
  - Weight increased [Unknown]
  - Sleep apnoea syndrome [Unknown]
  - Visual impairment [Unknown]
  - Abnormal behaviour [Unknown]
  - Pain [Not Recovered/Not Resolved]
  - Malaise [Recovering/Resolving]
  - Drug ineffective [Unknown]
